FAERS Safety Report 5300820-5 (Version None)
Quarter: 2007Q1

REPORT INFORMATION
  Report Type: 
  Country: None (occurrence: None)
  Receive Date: 20070201
  Receipt Date: 20061130
  Transmission Date: 20070707
  Serious: No
  Sender: FDA-Public Use
  Company Number: 2006PV026174

PATIENT
  Age: 52 Year
  Sex: Female

DRUGS (1)
  1. BYETTA [Suspect]
     Indication: DRUG USE FOR UNKNOWN INDICATION
     Dosage: 10 MCG
     Dates: start: 20060901

REACTIONS (4)
  - DIVERTICULITIS [None]
  - GASTROINTESTINAL DISORDER [None]
  - VISION BLURRED [None]
  - VOMITING [None]
